FAERS Safety Report 7361837-2 (Version None)
Quarter: 2011Q1

REPORT INFORMATION
  Report Type: 
  Country: None (occurrence: None)
  Receive Date: 20110318
  Receipt Date: 20110308
  Transmission Date: 20110831
  Serious: Yes (Hospitalization)
  Sender: FDA-Public Use
  Company Number: US-JNJFOC-20071200615

PATIENT
  Sex: Male
  Weight: 20 kg

DRUGS (9)
  1. INFLIXIMAB [Suspect]
     Route: 042
  2. INFLIXIMAB [Suspect]
     Indication: COLITIS ULCERATIVE
     Route: 042
  3. PREVACID [Concomitant]
  4. INFLIXIMAB [Suspect]
     Route: 042
  5. VITAMIN K TAB [Concomitant]
  6. INFLIXIMAB [Suspect]
     Route: 042
  7. INFLIXIMAB [Suspect]
     Indication: COLITIS
     Route: 042
  8. INFLIXIMAB [Suspect]
     Indication: INFLAMMATORY BOWEL DISEASE
     Route: 042
  9. URSODIOL [Concomitant]

REACTIONS (2)
  - ABDOMINAL PAIN [None]
  - VIRAL INFECTION [None]
